FAERS Safety Report 8789577 (Version 1)
Quarter: 2012Q4

REPORT INFORMATION
  Report Type: Spontaneous
  Country: DK (occurrence: None)
  Receive Date: 20120906
  Receipt Date: 20120906
  Transmission Date: 20130627
  Serious: Yes (Hospitalization)
  Sender: FDA-Public Use
  Company Number: 2012MA010619

PATIENT
  Age: 80 Year
  Sex: Male

DRUGS (8)
  1. TRAMADOL HYDROCHLORIDE [Suspect]
     Route: 048
     Dates: end: 20120720
  2. ARTHROTEC [Concomitant]
  3. PARACETAMOL [Concomitant]
  4. GABAPENTIN [Concomitant]
  5. BENDROFLUMETHIAZIDE [Concomitant]
  6. SALBUTAMOL [Concomitant]
  7. SERETIDE [Concomitant]
  8. IPRATROPIUM BROMIDE [Concomitant]

REACTIONS (4)
  - Urinary retention [None]
  - Nocturia [None]
  - Dysuria [None]
  - Prostatomegaly [None]
